FAERS Safety Report 16161644 (Version 3)
Quarter: 2019Q2

REPORT INFORMATION
  Report Type: Spontaneous
  Country: IT (occurrence: IT)
  Receive Date: 20190405
  Receipt Date: 20190413
  Transmission Date: 20190711
  Serious: Yes (Other)
  Sender: FDA-Public Use
  Company Number: IT-ACCORD-117863

PATIENT
  Age: 71 Year
  Sex: Male

DRUGS (8)
  1. DOXORUBICIN [Suspect]
     Active Substance: DOXORUBICIN
     Indication: NON-HODGKIN^S LYMPHOMA
     Dosage: ADMINISTERED EVERY 21 DAYS
     Dates: start: 201606, end: 201610
  2. PHENOBARBITAL/PHENOBARBITAL DIETHYLAMINE/PHENOBARBITAL SODIUM [Concomitant]
     Indication: EPILEPSY
  3. VINCRISTINE [Suspect]
     Active Substance: VINCRISTINE
     Indication: NON-HODGKIN^S LYMPHOMA
     Dosage: ADMINISTERED EVERY 21 DAYS
     Dates: start: 201606, end: 201610
  4. PREDNISOLONE. [Suspect]
     Active Substance: PREDNISOLONE
     Indication: NON-HODGKIN^S LYMPHOMA
     Dosage: ADMINISTERED EVERY 21 DAYS
     Dates: start: 201606, end: 201610
  5. BICALUTAMIDE. [Suspect]
     Active Substance: BICALUTAMIDE
     Indication: NON-HODGKIN^S LYMPHOMA
     Dates: start: 201607, end: 201608
  6. CYCLOPHOSPHAMIDE/CYCLOPHOSPHAMIDE MONOHYDRATE [Suspect]
     Active Substance: CYCLOPHOSPHAMIDE
     Indication: NON-HODGKIN^S LYMPHOMA
     Dosage: ADMINISTERED EVERY 21 DAYS
     Dates: start: 201606, end: 201610
  7. RITUXIMAB. [Suspect]
     Active Substance: RITUXIMAB
     Indication: NON-HODGKIN^S LYMPHOMA
     Dosage: ADMINISTERED EVERY 21 DAYS
     Route: 042
     Dates: start: 201606, end: 201610
  8. TRIPTORELIN/TRIPTORELIN ACETATE/TRIPTORELIN EMBONATE [Suspect]
     Active Substance: TRIPTORELIN
     Indication: NON-HODGKIN^S LYMPHOMA
     Dosage: MONTHLY
     Dates: start: 201607

REACTIONS (3)
  - Breast swelling [Unknown]
  - Anaemia [Unknown]
  - Neutropenia [Unknown]

NARRATIVE: CASE EVENT DATE: 2016
